FAERS Safety Report 8220916-8 (Version None)
Quarter: 2012Q1

REPORT INFORMATION
  Report Type: 
  Country: None (occurrence: None)
  Receive Date: 20120319
  Receipt Date: 20120308
  Transmission Date: 20120608
  Serious: Yes (Hospitalization)
  Sender: FDA-Public Use
  Company Number: US-JNJFOC-20120305515

PATIENT
  Sex: Male
  Weight: 82.1 kg

DRUGS (3)
  1. UNKNOWN MEDICATION [Concomitant]
     Indication: HYPERTENSION
     Dates: start: 19880101
  2. DURAGESIC-100 [Suspect]
     Indication: PAIN
     Route: 062
  3. UNKNOWN MEDICATION [Concomitant]
     Indication: PRODUCT USED FOR UNKNOWN INDICATION

REACTIONS (6)
  - CEREBROVASCULAR ACCIDENT [None]
  - BODY HEIGHT DECREASED [None]
  - THERAPEUTIC RESPONSE DECREASED [None]
  - CARDIAC ARREST [None]
  - PNEUMONIA [None]
  - PAIN [None]
